FAERS Safety Report 13926462 (Version 1)
Quarter: 2017Q3

REPORT INFORMATION
  Report Type: Spontaneous
  Country: GB (occurrence: None)
  Receive Date: 20170831
  Receipt Date: 20170831
  Transmission Date: 20171127
  Serious: Yes (Hospitalization)
  Sender: FDA-Public Use
  Company Number: None

PATIENT
  Age: 61 Year
  Sex: Female
  Weight: 58.8 kg

DRUGS (1)
  1. TAXOL [Suspect]
     Active Substance: PACLITAXEL
     Dates: end: 20170220

REACTIONS (7)
  - Ascites [None]
  - Malaise [None]
  - Dyspnoea [None]
  - Hyponatraemia [None]
  - Oropharyngeal pain [None]
  - Nausea [None]
  - Hyperkalaemia [None]

NARRATIVE: CASE EVENT DATE: 20170320
